FAERS Safety Report 4931895-0 (Version None)
Quarter: 2006Q1

REPORT INFORMATION
  Report Type: 
  Country: None (occurrence: None)
  Receive Date: 20060303
  Receipt Date: 20051122
  Transmission Date: 20060701
  Serious: Yes (Death)
  Sender: FDA-Public Use
  Company Number: US-MERCK-0511USA03800

PATIENT
  Age: 53 Year
  Sex: Male

DRUGS (2)
  1. VIOXX [Suspect]
     Indication: OSTEOARTHRITIS
     Route: 048
     Dates: start: 20010101
  2. VIOXX [Suspect]
     Route: 048
     Dates: start: 20020122, end: 20020128

REACTIONS (26)
  - ANXIETY [None]
  - ARTERIOSCLEROSIS CORONARY ARTERY [None]
  - CARDIOMEGALY [None]
  - CHOLELITHIASIS [None]
  - DEPRESSION [None]
  - DIZZINESS [None]
  - ERECTILE DYSFUNCTION [None]
  - EXTRAPYRAMIDAL DISORDER [None]
  - FALL [None]
  - FATIGUE [None]
  - GASTROINTESTINAL TRACT ADENOMA [None]
  - GASTROOESOPHAGEAL REFLUX DISEASE [None]
  - HAEMATURIA [None]
  - HAEMORRHOIDS [None]
  - HEADACHE [None]
  - HYPERLIPIDAEMIA [None]
  - INFLUENZA [None]
  - JOINT SPRAIN [None]
  - MYOCARDIAL INFARCTION [None]
  - NECK INJURY [None]
  - NEPHROSCLEROSIS [None]
  - OESOPHAGITIS [None]
  - POLYP [None]
  - PULMONARY CONGESTION [None]
  - RESTLESS LEGS SYNDROME [None]
  - SPINAL OSTEOARTHRITIS [None]
